FAERS Safety Report 8326632-6 (Version None)
Quarter: 2012Q2

REPORT INFORMATION
  Report Type: 
  Country: None (occurrence: None)
  Receive Date: 20120501
  Receipt Date: 20120425
  Transmission Date: 20120825
  Serious: No
  Sender: FDA-Public Use
  Company Number: US-TEVA-335587USA

PATIENT
  Age: 75 Year
  Sex: Female

DRUGS (3)
  1. SINEMET [Concomitant]
     Indication: PARKINSON'S DISEASE
  2. DOPAMINE HCL [Concomitant]
     Indication: PARKINSON'S DISEASE
  3. AZILECT [Suspect]
     Indication: PARKINSON'S DISEASE
     Route: 048

REACTIONS (1)
  - NAUSEA [None]
